FAERS Safety Report 17306426 (Version 1)
Quarter: 2020Q1

REPORT INFORMATION
  Report Type: Spontaneous
  Country: US (occurrence: US)
  Receive Date: 20200123
  Receipt Date: 20200123
  Transmission Date: 20200409
  Serious: No
  Sender: FDA-Public Use
  Company Number: US-JNJFOC-20200113256

PATIENT
  Sex: Male
  Weight: 99.88 kg

DRUGS (1)
  1. MENS ROGAINE EXTRA STRENGTH [Suspect]
     Active Substance: MINOXIDIL
     Indication: ALOPECIA
     Dosage: AROUND HALF A CAPFUL TWICE DAILY
     Route: 061

REACTIONS (4)
  - Application site pain [Recovered/Resolved]
  - Application site irritation [Recovered/Resolved]
  - Incorrect dose administered [Unknown]
  - Application site erythema [Recovering/Resolving]
